FAERS Safety Report 6986625-8 (Version None)
Quarter: 2010Q3

REPORT INFORMATION
  Report Type: 
  Country: None (occurrence: None)
  Receive Date: 20100827
  Receipt Date: 20091101
  Transmission Date: 20110219
  Serious: Yes (Hospitalization)
  Sender: FDA-Public Use
  Company Number: AMAG200900043

PATIENT
  Age: 54 Year
  Sex: Female
  Weight: 43.5 kg

DRUGS (4)
  1. FERAHEME [Suspect]
     Indication: IRON DEFICIENCY ANAEMIA
     Dosage: 510 MG, SINGLE, INTRAVENOUS
     Route: 042
     Dates: start: 20091016, end: 20091016
  2. ANTIBIOTICS (CLOXACILLIN/ LACTIC ACID/ AMPICILLIN (LEXOPIN) [Concomitant]
  3. NEURONTIN [Concomitant]
  4. POTASSIUM (POTASSIUM GLUCONATE0 [Concomitant]

REACTIONS (1)
  - ANAPHYLACTIC REACTION [None]
